FAERS Safety Report 5336594-1 (Version None)
Quarter: 2007Q2

REPORT INFORMATION
  Report Type: 
  Country: None (occurrence: None)
  Receive Date: 20070529
  Receipt Date: 20070516
  Transmission Date: 20071010
  Serious: Yes (Hospitalization)
  Sender: FDA-Public Use
  Company Number: JP-NOVOPROD-263044

PATIENT
  Age: 80 Year
  Sex: Female
  Weight: 55 kg

DRUGS (8)
  1. GLUCAGON [Suspect]
     Indication: ENDOSCOPY GASTROINTESTINAL
     Dosage: 1 MG, UNK
     Route: 030
     Dates: start: 20070418, end: 20070418
  2. PRAVASTATIN [Concomitant]
     Indication: HYPERLIPIDAEMIA
     Dosage: 5 MG, QD
     Route: 048
     Dates: start: 20040702
  3. ITOPRIDE HYDROCHLORIDE [Concomitant]
     Indication: GASTRITIS
     Dosage: 50 MG, QD
     Route: 048
     Dates: start: 20040820
  4. DISTIGMINE BROMIDE [Concomitant]
     Indication: NEUROGENIC BLADDER
     Dosage: 5 MG, QD
     Route: 048
     Dates: start: 20060209
  5. PANTETHINE [Concomitant]
     Indication: CONSTIPATION
     Dosage: 2 MG, QD
     Route: 048
     Dates: start: 20040820
  6. MAGNESIUM OXIDE [Concomitant]
     Indication: CONSTIPATION
     Dosage: 2 G, QD
     Route: 048
     Dates: start: 20050820
  7. SENNOSIDE                          /00571901/ [Concomitant]
     Indication: CONSTIPATION
     Dosage: 24 MG, QD
     Route: 048
     Dates: start: 20040820
  8. PHOSCHOL [Concomitant]
     Indication: DRUG USE FOR UNKNOWN INDICATION
     Dosage: 1500 MG, QD
     Route: 048
     Dates: start: 20040702

REACTIONS (5)
  - DIZZINESS [None]
  - HYPERHIDROSIS [None]
  - HYPOTENSION [None]
  - NAUSEA [None]
  - SYNCOPE [None]
